FAERS Safety Report 23769969 (Version 1)
Quarter: 2024Q2

REPORT INFORMATION
  Report Type: Spontaneous
  Country: US (occurrence: None)
  Receive Date: 20240421
  Receipt Date: 20240421
  Transmission Date: 20240715
  Serious: Yes (Hospitalization)
  Sender: FDA-Public Use
  Company Number: None

PATIENT
  Age: 78 Year
  Sex: Male
  Weight: 74.25 kg

DRUGS (2)
  1. TAMSULOSIN [Suspect]
     Active Substance: TAMSULOSIN
     Indication: Prostatomegaly
     Dosage: FREQUENCY : DAILY;?
     Route: 048
     Dates: start: 20240419, end: 20240421
  2. ASPIRIN [Concomitant]
     Active Substance: ASPIRIN

REACTIONS (7)
  - Dizziness [None]
  - Dizziness [None]
  - Cold sweat [None]
  - Blood pressure immeasurable [None]
  - Pulse absent [None]
  - Bradycardia [None]
  - Adverse drug reaction [None]

NARRATIVE: CASE EVENT DATE: 20240420
